FAERS Safety Report 6342325-9 (Version None)
Quarter: 2009Q3

REPORT INFORMATION
  Report Type: 
  Country: None (occurrence: None)
  Receive Date: 20090907
  Receipt Date: 20070904
  Transmission Date: 20100115
  Serious: Yes (Other)
  Sender: FDA-Public Use
  Company Number: US-ASTRAZENECA-2006UW08418

PATIENT
  Age: 17697 Day
  Sex: Male
  Weight: 144.2 kg

DRUGS (20)
  1. SEROQUEL [Suspect]
     Indication: INSOMNIA
     Route: 048
     Dates: start: 20050222, end: 20060202
  2. SEROQUEL [Suspect]
     Indication: DEPRESSION
     Route: 048
     Dates: start: 20050222, end: 20060202
  3. SEROQUEL [Suspect]
     Route: 048
     Dates: start: 20050223
  4. SEROQUEL [Suspect]
     Route: 048
     Dates: start: 20050223
  5. THORAZINE [Concomitant]
  6. PROCRIT [Concomitant]
     Dosage: 40,000 UNITS/ML
     Dates: start: 20050224
  7. ZOLOFT [Concomitant]
     Route: 048
     Dates: start: 20050303
  8. AMITRIPTYLINE [Concomitant]
     Dates: start: 20050303
  9. CELLCEPT [Concomitant]
     Route: 048
     Dates: start: 20050317
  10. PREVACID [Concomitant]
     Route: 048
     Dates: start: 20050317
  11. METOPROLOL [Concomitant]
     Dates: start: 20050317
  12. AVANDIA [Concomitant]
     Route: 048
     Dates: start: 20050317
  13. GABAPENTIN [Concomitant]
     Route: 048
     Dates: start: 20050323
  14. METOCLOPRAMIDE [Concomitant]
     Dates: start: 20050403
  15. LEVOTHYROXINE [Concomitant]
     Dates: start: 20050413
  16. LASIX [Concomitant]
     Dates: start: 20060216
  17. FERROUS SULFATE TAB [Concomitant]
     Dates: start: 20050413
  18. LIPITOR [Concomitant]
     Dates: start: 20000927
  19. FLOMAX [Concomitant]
     Dates: start: 20060216
  20. ASPIRIN [Concomitant]
     Dates: start: 20060216

REACTIONS (3)
  - DIABETES MELLITUS [None]
  - DIABETIC NEUROPATHY [None]
  - KETOACIDOSIS [None]
